FAERS Safety Report 6174132-4 (Version None)
Quarter: 2009Q2

REPORT INFORMATION
  Report Type: 
  Country: None (occurrence: None)
  Receive Date: 20090430
  Receipt Date: 20090420
  Transmission Date: 20091009
  Serious: Yes (Hospitalization, Other)
  Sender: FDA-Public Use
  Company Number: US-ELI_LILLY_AND_COMPANY-US200904004872

PATIENT
  Sex: Female

DRUGS (12)
  1. EVISTA [Suspect]
     Dosage: UNK, UNKNOWN
     Route: 065
  2. ASPIRIN [Concomitant]
     Dosage: UNK, UNKNOWN
     Route: 065
  3. ALBUTEROL [Concomitant]
     Dosage: UNK, UNKNOWN
     Route: 065
  4. POTASSIUM CHLORIDE [Concomitant]
     Dosage: UNK, UNKNOWN
     Route: 065
  5. LASIX [Concomitant]
     Dosage: UNK, UNKNOWN
     Route: 065
  6. LOPRESSOR [Concomitant]
     Dosage: UNK, UNKNOWN
     Route: 065
  7. PLAVIX [Concomitant]
     Dosage: UNK, UNKNOWN
     Route: 065
  8. PROZAC [Concomitant]
     Dosage: UNK, UNKNOWN
     Route: 065
  9. SPIRIVA [Concomitant]
     Dosage: UNK, UNKNOWN
     Route: 065
  10. NORVASC [Concomitant]
     Dosage: UNK, UNKNOWN
     Route: 065
  11. ZETIA [Concomitant]
     Dosage: UNK, UNKNOWN
     Route: 065
  12. CRESTOR [Concomitant]
     Dosage: UNK, UNKNOWN
     Route: 065

REACTIONS (4)
  - DYSPNOEA [None]
  - LUNG NEOPLASM MALIGNANT [None]
  - PULMONARY EMBOLISM [None]
  - SURGERY [None]
